FAERS Safety Report 12724469 (Version 1)
Quarter: 2016Q3

REPORT INFORMATION
  Report Type: Other
  Country: US (occurrence: US)
  Receive Date: 20160908
  Receipt Date: 20160908
  Transmission Date: 20161109
  Serious: No
  Sender: FDA-Public Use
  Company Number: US-COL_21826_2016

PATIENT
  Sex: Male

DRUGS (2)
  1. COLGATE TOTAL ADVANCED CLEAN [Suspect]
     Active Substance: SODIUM FLUORIDE\TRICLOSAN
     Indication: PRODUCT USED FOR UNKNOWN INDICATION
     Dosage: NI/BID OR QID/
     Route: 048
     Dates: start: 2015
  2. COLGATE TOTAL ADVANCED PRO-SHIELD SPEARMINT SURGE [Suspect]
     Active Substance: CETYLPYRIDINIUM CHLORIDE
     Indication: PRODUCT USED FOR UNKNOWN INDICATION
     Dosage: NI/NI/
     Route: 048

REACTIONS (1)
  - Dental plaque [Not Recovered/Not Resolved]

NARRATIVE: CASE EVENT DATE: 2015
